FAERS Safety Report 14921477 (Version 1)
Quarter: 2018Q2

REPORT INFORMATION
  Report Type: Report from Study
  Country: None (occurrence: US)
  Receive Date: 20180522
  Receipt Date: 20180522
  Transmission Date: 20180711
  Serious: Yes (Other)
  Sender: FDA-Public Use
  Company Number: US-ABBVIE-18K-163-2336395-00

PATIENT
  Sex: Female

DRUGS (1)
  1. HUMIRA [Suspect]
     Active Substance: ADALIMUMAB
     Indication: RHEUMATOID ARTHRITIS
     Route: 058
     Dates: start: 201710, end: 201801

REACTIONS (9)
  - Drug intolerance [Unknown]
  - Gingivitis [Unknown]
  - Sialoadenitis [Unknown]
  - Rhinorrhoea [Unknown]
  - Systemic lupus erythematosus [Unknown]
  - Swelling face [Unknown]
  - Vaginal infection [Unknown]
  - Gout [Unknown]
  - Oral infection [Unknown]

NARRATIVE: CASE EVENT DATE: 2018
